FAERS Safety Report 25844875 (Version 2)
Quarter: 2025Q4

REPORT INFORMATION
  Report Type: Report from Study
  Country: IN (occurrence: IN)
  Receive Date: 20250925
  Receipt Date: 20251017
  Transmission Date: 20260118
  Serious: Yes (Hospitalization, Other)
  Sender: CIPLA
  Company Number: IN-CIPLA LTD.-2025IN11669

PATIENT

DRUGS (8)
  1. SPIRONOLACTONE\TORSEMIDE [Suspect]
     Active Substance: SPIRONOLACTONE\TORSEMIDE
     Indication: Product used for unknown indication
     Dosage: 0.5 DOSAGE FORM (? TAB), QD, STRENGTH: 10/50 MG
     Route: 048
  2. WARFARIN SODIUM [Suspect]
     Active Substance: WARFARIN SODIUM
     Indication: Product used for unknown indication
     Dosage: 3 MILLIGRAM, QD
     Route: 048
  3. METOPROLOL TARTRATE [Concomitant]
     Active Substance: METOPROLOL TARTRATE
     Indication: Product used for unknown indication
     Dosage: STRENGTH: 25 (UNITS UNSPECIFIED)
     Route: 065
  4. DOLO 650 [Concomitant]
     Indication: Product used for unknown indication
     Dosage: UNK, STRENGTH: 650 (UNITS UNSPECIFIED)
     Route: 065
  5. DEPLATT CV [Concomitant]
     Indication: Product used for unknown indication
     Dosage: UNK
     Route: 065
  6. AUTRIN [ASCORBIC ACID;CYANOCOBALAMIN;DEXPANTHENOL;FERROUS SULFATE;NICO [Concomitant]
     Indication: Product used for unknown indication
     Dosage: UNK
     Route: 065
  7. CREMAFFIN PLUS [Concomitant]
     Indication: Product used for unknown indication
     Dosage: UNK, STRENGTH: 20ML
     Route: 065
  8. LEVOFLOX [LEVOFLOXACIN] [Concomitant]
     Indication: Product used for unknown indication
     Dosage: UNK
     Route: 065

REACTIONS (6)
  - Coronary artery disease [Not Recovered/Not Resolved]
  - Postoperative wound infection [Not Recovered/Not Resolved]
  - Osteomyelitis [Not Recovered/Not Resolved]
  - Blood glucose fluctuation [Not Recovered/Not Resolved]
  - Fatigue [Not Recovered/Not Resolved]
  - Blood glucose increased [Recovered/Resolved]

NARRATIVE: CASE EVENT DATE: 20250101
